FAERS Safety Report 16577671 (Version 1)
Quarter: 2019Q3

REPORT INFORMATION
  Report Type: Spontaneous
  Country: US (occurrence: US)
  Receive Date: 20190716
  Receipt Date: 20190716
  Transmission Date: 20191004
  Serious: Yes (Hospitalization, Other)
  Sender: FDA-Public Use
  Company Number: US-GLENMARK PHARMACEUTICALS-2019GMK042112

PATIENT
  Age: 60 Year
  Sex: Female

DRUGS (3)
  1. TACROLIMUS. [Suspect]
     Active Substance: TACROLIMUS
     Indication: IMMUNOSUPPRESSANT DRUG THERAPY
     Dosage: UNK (MAINTENANCE IMMUNOSUPPRESSION)
     Route: 065
  2. PREDNISONE. [Suspect]
     Active Substance: PREDNISONE
     Indication: IMMUNOSUPPRESSANT DRUG THERAPY
     Dosage: UNK (MAINTENANCE IMMUNOSUPPRESSION)
     Route: 065
  3. MYCOPHENOLATE MOFETIL. [Suspect]
     Active Substance: MYCOPHENOLATE MOFETIL
     Indication: IMMUNOSUPPRESSANT DRUG THERAPY
     Dosage: UNK (MAINTENANCE IMMUNOSUPPRESSION)
     Route: 065

REACTIONS (6)
  - Bronchospasm [Recovered/Resolved]
  - Nephropathy toxic [Unknown]
  - Toxicity to various agents [Unknown]
  - End stage renal disease [Unknown]
  - Tracheobronchitis [Recovered/Resolved]
  - Stomatococcal infection [Recovered/Resolved]
